FAERS Safety Report 7000207-3 (Version None)
Quarter: 2010Q3

REPORT INFORMATION
  Report Type: 
  Country: None (occurrence: None)
  Receive Date: 20100920
  Receipt Date: 20090915
  Transmission Date: 20110219
  Serious: No
  Sender: FDA-Public Use
  Company Number: US-ASTRAZENECA-2009UW21586

PATIENT
  Age: 34 Year
  Sex: Female
  Weight: 127 kg

DRUGS (7)
  1. SEROQUEL [Suspect]
     Indication: SCHIZOPHRENIA
     Route: 048
     Dates: start: 20030101
  2. RISPERDAL [Concomitant]
     Indication: SCHIZOPHRENIA
     Dates: start: 20030101, end: 20030101
  3. ZYPREXA [Concomitant]
     Indication: SCHIZOPHRENIA
     Dates: start: 20030101, end: 20030101
  4. ABILIFY [Concomitant]
  5. GEODON [Concomitant]
  6. HALDOL [Concomitant]
  7. THORAZINE [Concomitant]

REACTIONS (2)
  - OBESITY [None]
  - TYPE 2 DIABETES MELLITUS [None]
